FAERS Safety Report 23382021 (Version 1)
Quarter: 2024Q1

REPORT INFORMATION
  Report Type: Spontaneous
  Country: RU (occurrence: RU)
  Receive Date: 20240109
  Receipt Date: 20240109
  Transmission Date: 20240410
  Serious: Yes (Other)
  Sender: FDA-Public Use
  Company Number: RU-002147023-NVSC2023RU276370

PATIENT
  Age: 67 Year

DRUGS (4)
  1. ZOLEDRONIC ACID [Suspect]
     Active Substance: ZOLEDRONIC ACID
     Indication: Adenocarcinoma
     Dosage: UNK
     Route: 065
  2. PREDNISOLONE [Suspect]
     Active Substance: PREDNISOLONE
     Indication: Adenocarcinoma
     Dosage: UNK
     Route: 065
  3. ABIRATERONE ACETATE [Suspect]
     Active Substance: ABIRATERONE ACETATE
     Indication: Adenocarcinoma
     Dosage: 1 G
     Route: 065
  4. DOCETAXEL [Concomitant]
     Active Substance: DOCETAXEL\DOCETAXEL ANHYDROUS
     Indication: Adenocarcinoma
     Dosage: 75 MG/M2, Q3W
     Route: 065
     Dates: start: 201912

REACTIONS (3)
  - Adenocarcinoma [Recovering/Resolving]
  - Malignant neoplasm progression [Recovering/Resolving]
  - Product use in unapproved indication [Unknown]
